FAERS Safety Report 9349391 (Version 1)
Quarter: 2013Q2

REPORT INFORMATION
  Report Type: Report from Study
  Country: JP (occurrence: JP)
  Receive Date: 20130614
  Receipt Date: 20130614
  Transmission Date: 20140414
  Serious: Yes (Other)
  Sender: FDA-Public Use
  Company Number: JP-ACTELION-A-CH2013-84282

PATIENT
  Age: 9 Year
  Sex: Male
  Weight: 34 kg

DRUGS (11)
  1. TRACLEER [Suspect]
     Indication: PULMONARY ARTERIAL HYPERTENSION
     Dosage: 46.88 MG, BID
     Route: 048
     Dates: start: 20070329, end: 20070403
  2. TRACLEER [Suspect]
     Dosage: 7.81 MG, BID
     Route: 048
     Dates: start: 20070201, end: 20070212
  3. TRACLEER [Suspect]
     Dosage: 15.63 MG, BID
     Route: 048
     Dates: start: 20070213, end: 20070312
  4. TRACLEER [Suspect]
     Dosage: 31.25 MG, BID
     Route: 048
     Dates: start: 20070313, end: 20070328
  5. TRACLEER [Suspect]
     Dosage: 62.5 MG, BID
     Route: 048
     Dates: start: 20070404, end: 20070427
  6. BERAPROST SODIUM [Suspect]
     Indication: PULMONARY ARTERIAL HYPERTENSION
     Dosage: 30 ?G, UNK
     Route: 048
     Dates: start: 20070205, end: 20070423
  7. BERAPROST SODIUM [Suspect]
     Dosage: UNK
  8. ASPIRIN [Suspect]
     Indication: PULMONARY ARTERIAL HYPERTENSION
     Dosage: 81 MG, QD
     Route: 048
     Dates: start: 20070125
  9. FUROSEMIDE [Concomitant]
  10. DOBUTAMINE HYDROCHLORIDE [Concomitant]
  11. OXYGEN [Concomitant]

REACTIONS (1)
  - Epistaxis [Unknown]
